FAERS Safety Report 7327118-8 (Version None)
Quarter: 2011Q1

REPORT INFORMATION
  Report Type: 
  Country: None (occurrence: None)
  Receive Date: 20110222
  Receipt Date: 20110127
  Transmission Date: 20110831
  Serious: Yes (Hospitalization, Other)
  Sender: FDA-Public Use
  Company Number: 01272011-CG-B

PATIENT
  Age: 51 Year
  Sex: Female
  Weight: 50 kg

DRUGS (33)
  1. CEPACOL [Suspect]
     Indication: OROPHARYNGEAL PAIN
     Dosage: ORAL
     Route: 048
     Dates: start: 20110113
  2. MEPERIDINE HCL [Concomitant]
  3. ADVAIR DISKUS 100/50 [Concomitant]
  4. ZOFRAN IVP [Concomitant]
  5. XYLOCAINE VISCOUS [Suspect]
     Indication: ANAESTHESIA PROCEDURE
     Dosage: 20 ML - ORAL
     Route: 048
     Dates: start: 20110113
  6. DAPTOMYCIN [Concomitant]
  7. BD POSIFLUSH NORMAL [Concomitant]
  8. MUPIROCIN OINTMENT [Concomitant]
  9. POSSIBLE BENZODIAZEPINE [Concomitant]
  10. APRESOLINE [Concomitant]
  11. ATROVENT [Concomitant]
  12. BACTROBAN [Concomitant]
  13. BETASEPT SURGICAL SCRUB [Concomitant]
  14. CHLORHEXIDINE BODY BATH [Concomitant]
  15. ALBUTEROL [Concomitant]
  16. PERCOLONE [Concomitant]
  17. SENOKOT [Concomitant]
  18. SALINE [Concomitant]
  19. CETACAINE SPRAY [Concomitant]
  20. ATIVAN [Concomitant]
  21. DILAUDID [Concomitant]
  22. VENTOLIN [Concomitant]
  23. VERSED [Concomitant]
  24. DUONEB [Concomitant]
  25. MIDAZOLAM [Concomitant]
  26. PERCOCET [Concomitant]
  27. TRAZODONE HCL [Concomitant]
  28. DEMEROL [Concomitant]
  29. HURRICAINE SPRAY [Concomitant]
  30. VANCOMYCIN [Concomitant]
  31. CYMBALTA [Concomitant]
  32. FEOSOL [Concomitant]
  33. LORAZEPAM [Concomitant]

REACTIONS (1)
  - OXYGEN SATURATION DECREASED [None]
